FAERS Safety Report 8118641-7 (Version None)
Quarter: 2012Q1

REPORT INFORMATION
  Report Type: 
  Country: None (occurrence: None)
  Receive Date: 20120207
  Receipt Date: 20120130
  Transmission Date: 20120608
  Serious: Yes (Hospitalization)
  Sender: FDA-Public Use
  Company Number: US-BAYER-201039231NA

PATIENT
  Age: 18 Year
  Sex: Female
  Weight: 95 kg

DRUGS (3)
  1. YASMIN [Suspect]
     Indication: CONTRACEPTION
     Dates: start: 20030716, end: 20070927
  2. ACIPHEX [Concomitant]
     Indication: GASTROOESOPHAGEAL REFLUX DISEASE
     Dosage: UNK
     Dates: start: 20040601, end: 20041101
  3. NEXIUM [Concomitant]

REACTIONS (1)
  - CHOLELITHIASIS [None]
